FAERS Safety Report 19027483 (Version 1)
Quarter: 2021Q1

REPORT INFORMATION
  Report Type: Spontaneous
  Country: FR (occurrence: FR)
  Receive Date: 20210318
  Receipt Date: 20210318
  Transmission Date: 20210420
  Serious: Yes (Death, Hospitalization)
  Sender: FDA-Public Use
  Company Number: FR-009507513-2103FRA003324

PATIENT
  Age: 49 Year
  Sex: Male
  Weight: 53.9 kg

DRUGS (12)
  1. TIENAM 500MG/500MG, POUDRE POUR PERFUSION [Suspect]
     Active Substance: CILASTATIN SODIUM\IMIPENEM
     Indication: OSTEITIS
     Dosage: 1 G FOUR TIMES A WEEK
     Route: 042
     Dates: start: 20210104, end: 20210113
  2. CIRCADIN [Concomitant]
     Active Substance: MELATONIN
     Route: 048
  3. ALPRAZOLAM. [Concomitant]
     Active Substance: ALPRAZOLAM
     Route: 048
  4. PANTOPRAZOLE [Concomitant]
     Active Substance: PANTOPRAZOLE
  5. RACECADOTRIL [Suspect]
     Active Substance: RACECADOTRIL
     Indication: DIARRHOEA
     Dosage: MAX 3 CAPSULES PER DAY
     Route: 048
     Dates: start: 20210107, end: 20210113
  6. FUROSEMIDE. [Concomitant]
     Active Substance: FUROSEMIDE
  7. RENVELA [Concomitant]
     Active Substance: SEVELAMER CARBONATE
     Dosage: MIDDAY AND EVENING
     Route: 048
  8. VANCOMYCIN [Suspect]
     Active Substance: VANCOMYCIN
     Indication: OSTEITIS
     Dosage: 1.5 G THRICE A WEEK
     Route: 042
     Dates: start: 20210103, end: 20210112
  9. PREGABALIN. [Concomitant]
     Active Substance: PREGABALIN
     Route: 048
  10. LEVOTHYROXINE SODIUM. [Concomitant]
     Active Substance: LEVOTHYROXINE SODIUM
     Route: 048
  11. DOLIPRANE [Concomitant]
     Active Substance: ACETAMINOPHEN
     Dosage: IF NEEDED
  12. COUMADINE [Concomitant]
     Active Substance: WARFARIN SODIUM
     Dosage: THE EVENING
     Route: 048

REACTIONS (1)
  - Toxic epidermal necrolysis [Fatal]

NARRATIVE: CASE EVENT DATE: 20210119
